FAERS Safety Report 17855289 (Version 2)
Quarter: 2020Q2

REPORT INFORMATION
  Report Type: Spontaneous
  Country: US (occurrence: US)
  Receive Date: 20200603
  Receipt Date: 20200619
  Transmission Date: 20200714
  Serious: No
  Sender: FDA-Public Use
  Company Number: US-JNJFOC-20200537788

PATIENT
  Age: 26 Year
  Sex: Male
  Weight: 74.91 kg

DRUGS (1)
  1. TREMFYA [Suspect]
     Active Substance: GUSELKUMAB
     Indication: PSORIASIS
     Route: 065

REACTIONS (2)
  - Complication associated with device [Unknown]
  - Product dose omission [Unknown]

NARRATIVE: CASE EVENT DATE: 20200529
